FAERS Safety Report 8880535 (Version 1)
Quarter: 2012Q4

REPORT INFORMATION
  Report Type: 
  Country: US (occurrence: US)
  Receive Date: 20121031
  Receipt Date: 20121031
  Transmission Date: 20130627
  Serious: Yes (Hospitalization, Disabling, Other)
  Sender: FDA-Public Use
  Company Number: US-009507513-1104USA02658

PATIENT

DRUGS (7)
  1. FOSAMAX [Suspect]
     Indication: OSTEOPENIA
     Route: 048
     Dates: start: 199904, end: 201003
  2. FOSAMAX [Suspect]
     Indication: OSTEOPOROSIS
     Dosage: 70 mg, QW
     Route: 048
     Dates: start: 200312, end: 200802
  3. FOSAMAX PLUS D [Suspect]
     Indication: PROPHYLAXIS
     Route: 048
  4. FOSAMAX [Suspect]
     Indication: OSTEOPENIA
     Dosage: 70 mg, QW
     Route: 048
     Dates: start: 20080218, end: 201003
  5. ALENDRONATE SODIUM [Suspect]
     Indication: OSTEOPENIA
     Dosage: 70 mg, QW
     Route: 048
     Dates: start: 20080909, end: 200910
  6. BONIVA [Suspect]
     Indication: OSTEOPENIA
     Dosage: 150 mg, UNK
     Route: 048
     Dates: start: 201003, end: 201009
  7. BONIVA [Suspect]
     Indication: OSTEOPOROSIS

REACTIONS (34)
  - Femur fracture [Recovered/Resolved]
  - Low turnover osteopathy [Unknown]
  - Femur fracture [Unknown]
  - Vitamin D deficiency [Unknown]
  - Impaired healing [Recovered/Resolved]
  - Adverse event [Unknown]
  - Hormone level abnormal [Unknown]
  - Fall [Unknown]
  - Eyelid injury [Unknown]
  - Plantar fasciitis [Unknown]
  - Breast disorder [Unknown]
  - Sciatica [Unknown]
  - Osteoarthritis [Unknown]
  - Paraesthesia [Unknown]
  - Anaemia postoperative [Unknown]
  - Hypotension [Recovered/Resolved]
  - Constipation [Unknown]
  - Hypovolaemia [Unknown]
  - Seborrhoeic keratosis [Unknown]
  - Psoriasis [Unknown]
  - Antinuclear antibody positive [Unknown]
  - Pain in extremity [Unknown]
  - Anaemia [Unknown]
  - Psoriatic arthropathy [Unknown]
  - Fatigue [Unknown]
  - Arthralgia [Unknown]
  - Night blindness [Unknown]
  - Chondrocalcinosis pyrophosphate [Unknown]
  - Haemochromatosis [Unknown]
  - Weight increased [Unknown]
  - Pleurisy [Unknown]
  - Heart rate irregular [Unknown]
  - Femur fracture [Unknown]
  - Periodontitis [Unknown]
